FAERS Safety Report 25621128 (Version 1)
Quarter: 2025Q3

REPORT INFORMATION
  Report Type: Spontaneous
  Country: EU (occurrence: EU)
  Receive Date: 20250730
  Receipt Date: 20250730
  Transmission Date: 20251020
  Serious: Yes (Other)
  Sender: CELLTRION
  Company Number: EU-SANDOZ-SDZ2025HR025508

PATIENT

DRUGS (1)
  1. ADALIMUMAB [Suspect]
     Active Substance: ADALIMUMAB
     Indication: Spondylitis
     Route: 065

REACTIONS (3)
  - Crohn^s disease [Unknown]
  - Paradoxical psoriasis [Unknown]
  - Hidradenitis [Unknown]

NARRATIVE: CASE EVENT DATE: 20180101
